FAERS Safety Report 14112879 (Version 1)
Quarter: 2017Q4

REPORT INFORMATION
  Report Type: Other
  Country: CA (occurrence: CA)
  Receive Date: 20171022
  Receipt Date: 20171022
  Transmission Date: 20180321
  Serious: Yes (Other)
  Sender: FDA-Public Use
  Company Number: CA-ALSI-201700284

PATIENT
  Age: 71 Year
  Sex: Female

DRUGS (4)
  1. VENTOLIN HFA [Concomitant]
     Active Substance: ALBUTEROL SULFATE
  2. NITROGEN. [Suspect]
     Active Substance: NITROGEN
     Indication: ACTINIC KERATOSIS
     Route: 003
  3. NORVASC [Concomitant]
     Active Substance: AMLODIPINE BESYLATE
  4. ATACAND [Concomitant]
     Active Substance: CANDESARTAN CILEXETIL

REACTIONS (1)
  - Cellulitis [Recovered/Resolved]
